FAERS Safety Report 20978777 (Version 1)
Quarter: 2022Q2

REPORT INFORMATION
  Report Type: Spontaneous
  Country: LU (occurrence: LU)
  Receive Date: 20220619
  Receipt Date: 20220619
  Transmission Date: 20220720
  Serious: Yes (Other)
  Sender: FDA-Public Use
  Company Number: None

PATIENT
  Age: 90 Year
  Sex: Female
  Weight: 80 kg

DRUGS (4)
  1. PACLITAXEL [Suspect]
     Active Substance: PACLITAXEL
     Indication: Metastases to peritoneum
     Dosage: 80 MG/M2, PACLITAXIN TEVA
     Route: 041
     Dates: end: 20220517
  2. CIMETIDINE [Concomitant]
     Active Substance: CIMETIDINE
     Indication: Chemotherapy side effect prophylaxis
     Dosage: 400MG, FREQUENCY TIME 1TOTAL; 12:20 TO 12.20
     Route: 048
     Dates: start: 20220517, end: 20220517
  3. DEXAMETHASONE [Concomitant]
     Active Substance: DEXAMETHASONE
     Indication: Chemotherapy side effect prophylaxis
     Dosage: 8MG, FREQUENCY TIME 1TOTAL, 12:50 TO 13.20
     Route: 041
     Dates: start: 20220517, end: 20220517
  4. ONDANSETRON [Concomitant]
     Active Substance: ONDANSETRON
     Indication: Chemotherapy side effect prophylaxis
     Dosage: 8MG, FREQUENCY TIME 1TOTAL, 12.50-13.20
     Route: 041
     Dates: start: 20220517, end: 20220517

REACTIONS (3)
  - Respiratory distress [Recovering/Resolving]
  - Nausea [Recovering/Resolving]
  - Hypertension [Recovering/Resolving]

NARRATIVE: CASE EVENT DATE: 20220517
